FAERS Safety Report 20435602 (Version 1)
Quarter: 2022Q1

REPORT INFORMATION
  Report Type: Spontaneous
  Country: IN (occurrence: IN)
  Receive Date: 20220207
  Receipt Date: 20220207
  Transmission Date: 20220423
  Serious: Yes (Other)
  Sender: FDA-Public Use
  Company Number: None

PATIENT
  Age: 47 Year
  Sex: Male

DRUGS (1)
  1. VANCOMYCIN [Suspect]
     Active Substance: VANCOMYCIN
     Indication: COVID-19 pneumonia
     Dosage: UNK
     Route: 065

REACTIONS (5)
  - Leukopenia [Recovered/Resolved]
  - Myeloid maturation arrest [Recovered/Resolved]
  - Blast cell proliferation [Recovered/Resolved]
  - Marrow hyperplasia [Recovered/Resolved]
  - Off label use [Unknown]
